FAERS Safety Report 5504819-5 (Version None)
Quarter: 2007Q4

REPORT INFORMATION
  Report Type: 
  Country: None (occurrence: None)
  Receive Date: 20071031
  Receipt Date: 20071031
  Transmission Date: 20080405
  Serious: No
  Sender: FDA-Public Use
  Company Number: None

PATIENT
  Age: 72 Year
  Sex: Female
  Weight: 52.1637 kg

DRUGS (1)
  1. PRO AIR ALBUTEROL 8.5G [Suspect]
     Indication: CHRONIC OBSTRUCTIVE PULMONARY DISEASE
     Dosage: 2 PUFFS 4 TIMES A DAY

REACTIONS (4)
  - COUGH [None]
  - DYSGEUSIA [None]
  - EAR PAIN [None]
  - PHARYNGOLARYNGEAL PAIN [None]
